FAERS Safety Report 4362729-3 (Version None)
Quarter: 2004Q2

REPORT INFORMATION
  Report Type: 
  Country: None (occurrence: None)
  Receive Date: 20040517
  Receipt Date: 20040407
  Transmission Date: 20050107
  Serious: No
  Sender: FDA-Public Use
  Company Number: S04-USA-02031-01

PATIENT
  Age: 88 Year
  Sex: Female

DRUGS (10)
  1. NAMENDA [Suspect]
     Indication: DEMENTIA ALZHEIMER'S TYPE
     Dosage: 5 MG QD PO
     Route: 048
     Dates: start: 20040401
  2. LOPRESSOR [Concomitant]
  3. ENALAPRIL [Concomitant]
  4. CARDIZEM CD [Concomitant]
  5. HYDROCHLOROTHIAZIDE [Concomitant]
  6. PLAVIX [Concomitant]
  7. PRILOSEC [Concomitant]
  8. REMINYL [Concomitant]
  9. MULTI-VITAMIN [Concomitant]
  10. ASPIRIN ENTERIC COATED K.P. (ACETYLSALICYCLIC ACID) [Concomitant]

REACTIONS (1)
  - DIARRHOEA [None]
